FAERS Safety Report 7738716-1 (Version None)
Quarter: 2011Q3

REPORT INFORMATION
  Report Type: 
  Country: None (occurrence: None)
  Receive Date: 20110908
  Receipt Date: 20110906
  Transmission Date: 20111222
  Serious: No
  Sender: FDA-Public Use
  Company Number: US-PFIZER INC-2011208467

PATIENT
  Sex: Male
  Weight: 77.098 kg

DRUGS (2)
  1. PRISTIQ [Suspect]
     Indication: DEPRESSION
     Dosage: 50 MG, DAILY
     Route: 048
     Dates: start: 20110830
  2. SEROQUEL [Concomitant]
     Indication: DEPRESSION
     Dosage: 150 MG

REACTIONS (1)
  - GAIT DISTURBANCE [None]
